FAERS Safety Report 9242450 (Version 1)
Quarter: 2013Q2

REPORT INFORMATION
  Report Type: Spontaneous
  Country: GB (occurrence: GB)
  Receive Date: 20130419
  Receipt Date: 20130419
  Transmission Date: 20140414
  Serious: Yes (Disabling)
  Sender: FDA-Public Use
  Company Number: GB-TEVA-397963ISR

PATIENT
  Age: 37 Year
  Sex: Female
  Weight: 82.55 kg

DRUGS (2)
  1. LEVOTHYROXINE [Suspect]
     Indication: HYPOTHYROIDISM
     Route: 048
  2. VENLAFAXINE HYDROCHLORIDE [Concomitant]

REACTIONS (7)
  - Feeling abnormal [Not Recovered/Not Resolved]
  - Disturbance in attention [Not Recovered/Not Resolved]
  - Pruritus [Not Recovered/Not Resolved]
  - Fatigue [Not Recovered/Not Resolved]
  - Dizziness [Not Recovered/Not Resolved]
  - Confusional state [Not Recovered/Not Resolved]
  - Condition aggravated [Not Recovered/Not Resolved]
